FAERS Safety Report 12694802 (Version 1)
Quarter: 2016Q3

REPORT INFORMATION
  Report Type: Spontaneous
  Country: IT (occurrence: IT)
  Receive Date: 20160829
  Receipt Date: 20160829
  Transmission Date: 20161109
  Serious: Yes (Hospitalization, Other)
  Sender: FDA-Public Use
  Company Number: IT-JNJFOC-20160818273

PATIENT
  Age: 45 Year
  Sex: Female

DRUGS (2)
  1. HALDOL [Suspect]
     Active Substance: HALOPERIDOL
     Indication: PRODUCT USED FOR UNKNOWN INDICATION
     Dosage: HALF VIAL
     Route: 048
     Dates: start: 20160821, end: 20160821
  2. TALOFEN [Suspect]
     Active Substance: PROMAZINE HYDROCHLORIDE
     Indication: PRODUCT USED FOR UNKNOWN INDICATION
     Route: 042
     Dates: start: 20160821, end: 20160821

REACTIONS (10)
  - Drug abuse [Unknown]
  - Rhabdomyolysis [Unknown]
  - Incorrect dose administered [Unknown]
  - Trismus [Unknown]
  - Hyperhidrosis [Unknown]
  - Metabolic acidosis [Unknown]
  - Hypertonia [Unknown]
  - Treatment noncompliance [Unknown]
  - Agitation [Unknown]
  - Tremor [Unknown]

NARRATIVE: CASE EVENT DATE: 201608
